FAERS Safety Report 6673590-6 (Version None)
Quarter: 2010Q1

REPORT INFORMATION
  Report Type: 
  Country: None (occurrence: None)
  Receive Date: 20100329
  Receipt Date: 20090715
  Transmission Date: 20100710
  Serious: Yes (Other)
  Sender: FDA-Public Use
  Company Number: 2009218272

PATIENT
  Age: 13 Year
  Sex: Female
  Weight: 68 kg

DRUGS (1)
  1. GEODON [Suspect]

REACTIONS (3)
  - DIZZINESS [None]
  - MYALGIA [None]
  - PALPITATIONS [None]
